FAERS Safety Report 6477660-7 (Version None)
Quarter: 2009Q4

REPORT INFORMATION
  Report Type: 
  Country: None (occurrence: None)
  Receive Date: 20091207
  Receipt Date: 20091202
  Transmission Date: 20100525
  Serious: No
  Sender: FDA-Public Use
  Company Number: US-ROXANE LABORATORIES, INC.-2009-RO-01085RO

PATIENT
  Sex: Female
  Weight: 56 kg

DRUGS (7)
  1. BALSALAZIDE [Suspect]
     Indication: COLITIS
     Dosage: 4500 MG
     Route: 048
     Dates: start: 20070101
  2. INTERCORDIN [Concomitant]
  3. CETRIZINE [Concomitant]
     Indication: HYPERSENSITIVITY
  4. OMEPRAZOLE [Concomitant]
     Indication: DYSPEPSIA
  5. ATENOLOL [Concomitant]
     Indication: BLOOD PRESSURE
  6. MICARDIS [Concomitant]
     Indication: BLOOD PRESSURE
  7. AMLODIPINE [Concomitant]
     Indication: BLOOD PRESSURE

REACTIONS (3)
  - ALOPECIA [None]
  - FALL [None]
  - PAIN [None]
